FAERS Safety Report 20245242 (Version 1)
Quarter: 2021Q4

REPORT INFORMATION
  Report Type: Spontaneous
  Country: GB (occurrence: None)
  Receive Date: 20211229
  Receipt Date: 20211229
  Transmission Date: 20220303
  Serious: Yes (Other)
  Sender: FDA-Public Use
  Company Number: GB-Hikma Pharmaceuticals-GB-H14001-21-05538

PATIENT
  Age: 69 Year
  Sex: Male

DRUGS (1)
  1. METHYLPREDNISOLONE [Suspect]
     Active Substance: METHYLPREDNISOLONE
     Indication: Myelitis transverse
     Route: 042

REACTIONS (4)
  - Dural arteriovenous fistula [Recovered/Resolved]
  - Condition aggravated [Recovered/Resolved]
  - Quadriplegia [Unknown]
  - Respiratory failure [Unknown]
